FAERS Safety Report 5883316-1 (Version None)
Quarter: 2008Q3

REPORT INFORMATION
  Report Type: 
  Country: None (occurrence: None)
  Receive Date: 20080910
  Receipt Date: 20080829
  Transmission Date: 20090109
  Serious: Yes (Death, Hospitalization)
  Sender: FDA-Public Use
  Company Number: 2007-02197

PATIENT
  Age: 68 Year
  Sex: Male
  Weight: 75 kg

DRUGS (4)
  1. VELCADE [Suspect]
     Indication: B-CELL LYMPHOMA
     Dosage: 2.90 MG, UNK, INTRAVENOUS, 2.70 MG, UNK, INTRAVENOUS
     Route: 042
     Dates: start: 20070105, end: 20070524
  2. VELCADE [Suspect]
     Indication: B-CELL LYMPHOMA
     Dosage: 2.90 MG, UNK, INTRAVENOUS, 2.70 MG, UNK, INTRAVENOUS
     Route: 042
     Dates: end: 20070524
  3. METHYLPREDNIDOLE (METHYLPREDNISOLONE) [Concomitant]
  4. FLUCONAZOLE [Concomitant]

REACTIONS (25)
  - APLASIA [None]
  - ASCITES [None]
  - CELL DEATH [None]
  - CHOLECYSTITIS [None]
  - CHOLESTASIS [None]
  - COAGULATION FACTOR V LEVEL DECREASED [None]
  - CYTOLYTIC HEPATITIS [None]
  - CYTOMEGALOVIRUS INFECTION [None]
  - DRUG INEFFECTIVE [None]
  - ENTEROCOCCAL SEPSIS [None]
  - HAEMODIALYSIS [None]
  - HAEMORRHAGE SUBCUTANEOUS [None]
  - HEPATIC FAILURE [None]
  - HISTIOCYTOSIS HAEMATOPHAGIC [None]
  - HYPERCOAGULATION [None]
  - HYPERTRIGLYCERIDAEMIA [None]
  - HYPONATRAEMIA [None]
  - LARYNGEAL OBSTRUCTION [None]
  - MUCOSAL HAEMORRHAGE [None]
  - MUSCLE HAEMORRHAGE [None]
  - PLEURAL EFFUSION [None]
  - PSEUDOMONAL SEPSIS [None]
  - RENAL FAILURE ACUTE [None]
  - SEPTIC SHOCK [None]
  - SERUM FERRITIN INCREASED [None]
